FAERS Safety Report 5297680-8 (Version None)
Quarter: 2007Q1

REPORT INFORMATION
  Report Type: 
  Country: None (occurrence: None)
  Receive Date: 20070201
  Receipt Date: 20061030
  Transmission Date: 20070707
  Serious: No
  Sender: FDA-Public Use
  Company Number: 2006PV024174

PATIENT
  Age: 51 Year
  Sex: Female
  Weight: 70.3075 kg

DRUGS (13)
  1. BYETTA [Suspect]
     Indication: DIABETES MELLITUS NON-INSULIN-DEPENDENT
     Dosage: 5 MCG;BID;SC
     Route: 058
     Dates: start: 20061024, end: 20061030
  2. METFORMIN HCL [Concomitant]
  3. GLIMEPIRIDE [Concomitant]
  4. FLEXERIL [Concomitant]
  5. CLONAZEPAM [Concomitant]
  6. CYMBALTA [Concomitant]
  7. ASPIRIN [Concomitant]
  8. VYTORIN [Concomitant]
  9. NEXIUM [Concomitant]
  10. SEROQUEL [Concomitant]
  11. REQUIP [Concomitant]
  12. PREMARIN [Concomitant]
  13. GABAPENTIN [Concomitant]

REACTIONS (2)
  - MUSCLE SPASMS [None]
  - NODULE ON EXTREMITY [None]
